FAERS Safety Report 7813404-1 (Version None)
Quarter: 2011Q4

REPORT INFORMATION
  Report Type: 
  Country: None (occurrence: None)
  Receive Date: 20111014
  Receipt Date: 20111011
  Transmission Date: 20120403
  Serious: Yes (Hospitalization)
  Sender: FDA-Public Use
  Company Number: US-BRISTOL-MYERS SQUIBB COMPANY-13990726

PATIENT
  Age: 65 Year
  Sex: Male
  Weight: 79 kg

DRUGS (5)
  1. ATIVAN [Concomitant]
  2. LISINOPRIL [Concomitant]
  3. FENTANYL-100 [Concomitant]
  4. CISPLATIN [Suspect]
     Indication: HEAD AND NECK CANCER
     Dates: start: 20071112, end: 20071112
  5. OXYCODONE HCL [Concomitant]

REACTIONS (8)
  - DEHYDRATION [None]
  - HYPOXIA [None]
  - RADIATION SKIN INJURY [None]
  - ANAEMIA [None]
  - OESOPHAGITIS [None]
  - MUCOSAL INFLAMMATION [None]
  - HYPOTENSION [None]
  - ORAL PAIN [None]
